FAERS Safety Report 5311421-7 (Version None)
Quarter: 2007Q1

REPORT INFORMATION
  Report Type: 
  Country: None (occurrence: None)
  Receive Date: 20070201
  Receipt Date: 20061003
  Transmission Date: 20070707
  Serious: No
  Sender: FDA-Public Use
  Company Number: 257494

PATIENT
  Age: 59 Year
  Sex: Female

DRUGS (2)
  1. LEVEMIR [Suspect]
     Indication: DIABETES MELLITUS INSULIN-DEPENDENT
     Dosage: SUBCUTANEOUS
     Route: 058
     Dates: start: 20060511
  2. ASPIRIN [Concomitant]

REACTIONS (2)
  - INJECTION SITE DISCHARGE [None]
  - INJECTION SITE HAEMORRHAGE [None]
